FAERS Safety Report 4350601-4 (Version None)
Quarter: 2004Q2

REPORT INFORMATION
  Report Type: 
  Country: None (occurrence: None)
  Receive Date: 20040427
  Receipt Date: 20040415
  Transmission Date: 20050107
  Serious: Yes (Hospitalization)
  Sender: FDA-Public Use
  Company Number: 04P-150-0257804-00

PATIENT
  Age: 61 Year
  Sex: Male

DRUGS (9)
  1. HUMIRA [Suspect]
     Indication: RHEUMATOID ARTHRITIS
     Dosage: 40 MG, 1 IN 2 WK, SUBCUTANEOUS
     Route: 058
     Dates: start: 20030101, end: 20040401
  2. PREDNISONE [Concomitant]
  3. METHOTREXATE [Concomitant]
  4. KETOPROFEN [Concomitant]
  5. LANSOPRAZOLE [Concomitant]
  6. FOLIC ACID [Concomitant]
  7. METOPROLOL SUCCINATE [Concomitant]
  8. BENDROFLUMETHIAZIDE [Concomitant]
  9. CITALOPRAM [Concomitant]

REACTIONS (8)
  - ERYTHEMA [None]
  - HYPERSENSITIVITY [None]
  - OROPHARYNGEAL SWELLING [None]
  - PALATAL DISORDER [None]
  - PARAESTHESIA [None]
  - PARAESTHESIA ORAL [None]
  - PRURITUS [None]
  - THROAT IRRITATION [None]
